FAERS Safety Report 19732140 (Version 1)
Quarter: 2021Q3

REPORT INFORMATION
  Report Type: Spontaneous
  Country: US (occurrence: US)
  Receive Date: 20210819
  Receipt Date: 20210819
  Transmission Date: 20211014
  Serious: No
  Sender: FDA-Public Use
  Company Number: None

PATIENT
  Age: 83 Year
  Sex: Female

DRUGS (1)
  1. AMBRISENTAN 5MG TABLETS 30/BO: 5MG [Suspect]
     Active Substance: AMBRISENTAN
     Indication: PULMONARY HYPERTENSION
     Route: 048
     Dates: start: 20210218, end: 20210819

REACTIONS (7)
  - Erythema [None]
  - Peripheral swelling [None]
  - Vasodilatation [None]
  - Pain [None]
  - Hot flush [None]
  - Ill-defined disorder [None]
  - Condition aggravated [None]

NARRATIVE: CASE EVENT DATE: 20210805
